FAERS Safety Report 21120908 (Version 1)
Quarter: 2022Q3

REPORT INFORMATION
  Report Type: Spontaneous
  Country: KR (occurrence: KR)
  Receive Date: 20220722
  Receipt Date: 20220722
  Transmission Date: 20221026
  Serious: Yes (Other)
  Sender: FDA-Public Use
  Company Number: KR-SUN PHARMACEUTICAL INDUSTRIES LTD-2022RR-344954

PATIENT
  Age: 40 Year
  Sex: Male

DRUGS (7)
  1. GABAPENTIN [Suspect]
     Active Substance: GABAPENTIN
     Indication: Cough
     Dosage: 100 MILLIGRAM, BID
     Route: 065
  2. GABAPENTIN [Suspect]
     Active Substance: GABAPENTIN
     Dosage: 300 MILLIGRAM, BID
     Route: 065
  3. GABAPENTIN [Suspect]
     Active Substance: GABAPENTIN
     Dosage: 100 MILLIGRAM, BID
     Route: 065
  4. CODEINE [Suspect]
     Active Substance: CODEINE
     Indication: Cough
     Dosage: UNK
     Route: 065
  5. AMITRIPTYLINE [Concomitant]
     Active Substance: AMITRIPTYLINE
     Indication: Cough
     Dosage: 10 MILLIGRAM, DAILY
     Route: 065
  6. AZITHROMYCIN [Concomitant]
     Active Substance: AZITHROMYCIN
     Indication: Cough
     Dosage: 250 MILLIGRAM, EVERY OTHER DAY
     Route: 065
  7. PREDNISOLONE [Concomitant]
     Active Substance: PREDNISOLONE
     Indication: Cough
     Dosage: 15 MILLIGRAM, BID
     Route: 065

REACTIONS (4)
  - Drug ineffective [Unknown]
  - Fatigue [Unknown]
  - Blepharospasm [Unknown]
  - Pain [Unknown]
